FAERS Safety Report 6137973-5 (Version None)
Quarter: 2009Q1

REPORT INFORMATION
  Report Type: 
  Country: None (occurrence: None)
  Receive Date: 20090331
  Receipt Date: 20090326
  Transmission Date: 20090719
  Serious: Yes (Life-Threatening, Other)
  Sender: FDA-Public Use
  Company Number: JP-ELI_LILLY_AND_COMPANY-JP200811001758

PATIENT
  Sex: Male
  Weight: 66 kg

DRUGS (13)
  1. PEMETREXED [Suspect]
     Indication: PERITONEAL MESOTHELIOMA MALIGNANT
     Dosage: 500 MG/M2, OTHER
     Route: 042
     Dates: start: 20080403, end: 20080403
  2. CISPLATIN [Suspect]
     Indication: PERITONEAL MESOTHELIOMA MALIGNANT
     Dosage: 50 MG/M2, OTHER
     Route: 042
     Dates: start: 20080403, end: 20080403
  3. UREPEARL [Concomitant]
     Indication: PRURITUS
     Dosage: 20 G, DAILY (1/D)
     Route: 058
     Dates: start: 20080319
  4. MAGMITT [Concomitant]
     Indication: CONSTIPATION
     Dosage: 990 MG, DAILY (1/D)
     Route: 048
     Dates: end: 20080408
  5. LECICARBON /01207601/ [Concomitant]
     Indication: CONSTIPATION
     Dosage: 1 D/F, DAILY (1/D)
     Route: 054
     Dates: end: 20080404
  6. SELBEX [Concomitant]
     Indication: GASTRIC ULCER
     Dosage: 150 MG, DAILY (1/D)
     Route: 048
     Dates: end: 20080408
  7. VOLTAREN [Concomitant]
     Indication: CANCER PAIN
     Dosage: 25 MG, DAILY (1/D)
     Route: 054
     Dates: end: 20080404
  8. CODEINE PHOSPHATE [Concomitant]
     Indication: CANCER PAIN
     Dosage: 80 MG, DAILY (1/D)
     Route: 048
     Dates: end: 20080325
  9. SELTOUCH [Concomitant]
     Indication: CANCER PAIN
     Route: 058
  10. MORPHINE HYDROCHLORIDE [Concomitant]
     Indication: CANCER PAIN
     Dosage: 30 MG, DAILY (1/D)
     Route: 042
     Dates: start: 20080325, end: 20080421
  11. GASTER [Concomitant]
     Indication: GASTRIC ULCER
     Dosage: 10 MG, DAILY (1/D)
     Route: 042
     Dates: start: 20080405, end: 20080421
  12. PANVITAN [Concomitant]
     Dosage: 1 G, DAILY (1/D)
     Route: 048
     Dates: start: 20080326, end: 20080409
  13. CYANOCOBALAMIN [Concomitant]
     Dosage: 1 MG, DAILY (1/D)
     Route: 030
     Dates: start: 20080326, end: 20080326

REACTIONS (4)
  - ANOREXIA [None]
  - INFECTION [None]
  - PLATELET COUNT DECREASED [None]
  - UPPER GASTROINTESTINAL HAEMORRHAGE [None]
